FAERS Safety Report 10777261 (Version 1)
Quarter: 2015Q1

REPORT INFORMATION
  Report Type: Spontaneous
  Country: US (occurrence: US)
  Receive Date: 20150209
  Receipt Date: 20150209
  Transmission Date: 20150721
  Serious: Yes (Hospitalization, Other)
  Sender: FDA-Public Use
  Company Number: US-RECKITT BENCKISER PHARMACEUTICAL, INC-RB-62976-2014

PATIENT

DRUGS (2)
  1. BUPRENORPHINE UNSPECIFIED [Suspect]
     Active Substance: BUPRENORPHINE
     Indication: PRODUCT USED FOR UNKNOWN INDICATION
     Dosage: WHEN USING ILLICITLY DOSE UNKNOWN; WHEN PRESCRIBED TAKING 8-12 MG
     Route: 064
     Dates: start: 2013, end: 2013
  2. OPIATES [Concomitant]
     Active Substance: UNSPECIFIED INGREDIENT
     Indication: PRODUCT USED FOR UNKNOWN INDICATION
     Dosage: DOSING DETAILS UNKNOWN
     Route: 064
     Dates: start: 2013, end: 2013

REACTIONS (2)
  - Foetal exposure during pregnancy [Recovered/Resolved]
  - Infection [Not Recovered/Not Resolved]

NARRATIVE: CASE EVENT DATE: 2013
